FAERS Safety Report 8437396-X (Version None)
Quarter: 2012Q2

REPORT INFORMATION
  Report Type: 
  Country: None (occurrence: None)
  Receive Date: 20120614
  Receipt Date: 20120316
  Transmission Date: 20120825
  Serious: No
  Sender: FDA-Public Use
  Company Number: US-AMGEN-USASP2012017207

PATIENT
  Age: 64 Year
  Sex: Female

DRUGS (7)
  1. CALTRATE                           /00751519/ [Concomitant]
  2. VITAMIN D [Concomitant]
     Dosage: UNK
  3. EVISTA [Concomitant]
     Dosage: UNK
  4. CALCIUM [Concomitant]
  5. PROLIA [Suspect]
     Indication: OSTEOPOROSIS POSTMENOPAUSAL
     Dosage: 60 MG, Q6MO
     Dates: start: 20111019
  6. SYNTHROID [Concomitant]
     Dosage: UNK
  7. MULTIVITAMIN                       /00097801/ [Concomitant]

REACTIONS (1)
  - TOOTH LOSS [None]
